FAERS Safety Report 10210753 (Version 3)
Quarter: 2014Q3

REPORT INFORMATION
  Report Type: Spontaneous
  Country: GB (occurrence: GB)
  Receive Date: 20140602
  Receipt Date: 20140930
  Transmission Date: 20150326
  Serious: Yes (Other)
  Sender: FDA-Public Use
  Company Number: PHFR2014GB003848

PATIENT
  Age: 52 Year
  Sex: Female

DRUGS (5)
  1. CLOZARIL [Suspect]
     Active Substance: CLOZAPINE
     Indication: PSYCHOTIC DISORDER
     Dosage: UNK
     Route: 048
     Dates: start: 20041110
  2. CLOZARIL [Suspect]
     Active Substance: CLOZAPINE
     Dosage: 700 MG, DAILY
     Route: 048
  3. AMISULPRIDE [Concomitant]
     Active Substance: AMISULPRIDE
     Indication: PSYCHOTIC DISORDER
     Dosage: 400 MG, DAILY
     Route: 048
  4. HALOPERIDOL. [Concomitant]
     Active Substance: HALOPERIDOL
     Indication: PSYCHOTIC DISORDER
     Dosage: 10 MG, DAILY
     Route: 048
  5. MIRTAZAPINE. [Concomitant]
     Active Substance: MIRTAZAPINE
     Indication: DEPRESSION
     Dosage: 45 MG, DAILY
     Route: 048

REACTIONS (1)
  - Breast cancer [Unknown]

NARRATIVE: CASE EVENT DATE: 20140213
